FAERS Safety Report 14509170 (Version 1)
Quarter: 2018Q1

REPORT INFORMATION
  Report Type: Spontaneous
  Country: US (occurrence: US)
  Receive Date: 20180209
  Receipt Date: 20180209
  Transmission Date: 20180509
  Serious: Yes (Hospitalization, Other)
  Sender: FDA-Public Use
  Company Number: US-ALEMBIC PHARMACUETICALS LIMITED-2018SCAL000069

PATIENT

DRUGS (1)
  1. CLONIDINE?HYDROCHLORIDE [Suspect]
     Active Substance: CLONIDINE HYDROCHLORIDE
     Indication: PRODUCT USED FOR UNKNOWN INDICATION
     Dosage: TESTED ONE HUNDRED 0.1 MG CLONIDINE TABLETS

REACTIONS (3)
  - Intentional overdose [Unknown]
  - Hypertensive emergency [Recovering/Resolving]
  - Bradycardia [Recovering/Resolving]
